FAERS Safety Report 4511353-8 (Version None)
Quarter: 2004Q4

REPORT INFORMATION
  Report Type: 
  Country: None (occurrence: None)
  Receive Date: 20041123
  Receipt Date: 20041123
  Transmission Date: 20050328
  Serious: Yes (Disabling)
  Sender: FDA-Public Use
  Company Number: None

PATIENT
  Age: 44 Year
  Sex: Female
  Weight: 49.8957 kg

DRUGS (3)
  1. EFFEXOR XR [Suspect]
     Indication: ANXIETY
     Dosage: 37.5 MG ONCE DAILY ORAL
     Route: 048
     Dates: start: 20020110, end: 20041115
  2. EFFEXOR XR [Suspect]
     Indication: MAJOR DEPRESSION
     Dosage: 37.5 MG ONCE DAILY ORAL
     Route: 048
     Dates: start: 20020110, end: 20041115
  3. EFFEXOR XR [Suspect]
     Indication: OBSESSIVE-COMPULSIVE DISORDER
     Dosage: 37.5 MG ONCE DAILY ORAL
     Route: 048
     Dates: start: 20020110, end: 20041115

REACTIONS (3)
  - BALANCE DISORDER [None]
  - DRUG WITHDRAWAL SYNDROME [None]
  - DYSPHORIA [None]
